FAERS Safety Report 7998619-4 (Version None)
Quarter: 2011Q4

REPORT INFORMATION
  Report Type: 
  Country: None (occurrence: None)
  Receive Date: 20111221
  Receipt Date: 20111213
  Transmission Date: 20120403
  Serious: Yes (Hospitalization)
  Sender: FDA-Public Use
  Company Number: PHHO2011FR020915

PATIENT
  Sex: Female

DRUGS (4)
  1. METHOTREXATE [Suspect]
     Indication: BONE SARCOMA
     Dosage: 13.3 G, UNK
     Route: 042
     Dates: start: 20111105, end: 20111121
  2. ETOPOSIDE [Suspect]
     Indication: BONE SARCOMA
     Dosage: 33.6 MG, UNK
     Route: 042
     Dates: start: 20111128, end: 20111201
  3. IFOSFAMIDE [Suspect]
     Indication: BONE SARCOMA
     Dosage: 132.8 G, UNK
     Route: 042
     Dates: start: 20111128, end: 20111201
  4. NO TREATMENT RECEIVED [Suspect]
     Indication: BONE SARCOMA
     Dosage: NO TREATMENT RECEIVED

REACTIONS (2)
  - FEBRILE BONE MARROW APLASIA [None]
  - PNEUMOTHORAX [None]
